FAERS Safety Report 17670474 (Version 1)
Quarter: 2020Q2

REPORT INFORMATION
  Report Type: Spontaneous
  Country: US (occurrence: US)
  Receive Date: 20200413
  Receipt Date: 20200413
  Transmission Date: 20200713
  Serious: Yes (Hospitalization)
  Sender: FDA-Public Use
  Company Number: None

PATIENT
  Age: 49 Year
  Sex: Male

DRUGS (1)
  1. PROPOFOL (PROPOFOL 10MG/ML INJ, EMULSION) [Suspect]
     Active Substance: PROPOFOL
     Indication: SURGERY
     Dates: start: 20200219, end: 20200219

REACTIONS (5)
  - Atrial fibrillation [None]
  - Diarrhoea [None]
  - Supraventricular tachycardia [None]
  - Atrioventricular block complete [None]
  - Anaesthetic complication cardiac [None]

NARRATIVE: CASE EVENT DATE: 20200219
